FAERS Safety Report 19542534 (Version 2)
Quarter: 2021Q4

REPORT INFORMATION
  Report Type: Spontaneous
  Country: TH (occurrence: TH)
  Receive Date: 20210714
  Receipt Date: 20211201
  Transmission Date: 20220303
  Serious: Yes (Hospitalization)
  Sender: FDA-Public Use
  Company Number: TH-LUPIN PHARMACEUTICALS INC.-2021-11772

PATIENT
  Age: 30 Year
  Sex: Female

DRUGS (4)
  1. NADOLOL [Suspect]
     Active Substance: NADOLOL
     Indication: Ventricular tachycardia
     Dosage: UNK
     Route: 048
  2. NADOLOL [Suspect]
     Active Substance: NADOLOL
     Indication: Ventricular fibrillation
  3. FLECAINIDE [Suspect]
     Active Substance: FLECAINIDE
     Indication: Ventricular tachycardia
     Dosage: UNK
     Route: 048
  4. FLECAINIDE [Suspect]
     Active Substance: FLECAINIDE
     Indication: Ventricular fibrillation

REACTIONS (2)
  - Drug ineffective for unapproved indication [Unknown]
  - Off label use [Unknown]
